FAERS Safety Report 14287399 (Version 1)
Quarter: 2017Q4

REPORT INFORMATION
  Report Type: Spontaneous
  Country: US (occurrence: US)
  Receive Date: 20171214
  Receipt Date: 20171214
  Transmission Date: 20180321
  Serious: No
  Sender: FDA-Public Use
  Company Number: US-ASTELLAS-2017US043393

PATIENT
  Sex: Female
  Weight: 58 kg

DRUGS (2)
  1. TARCEVA [Suspect]
     Active Substance: ERLOTINIB HYDROCHLORIDE
     Dosage: 150 MG, ONCE DAILY (FOR FIVE DAYS)
     Route: 048
  2. TARCEVA [Suspect]
     Active Substance: ERLOTINIB HYDROCHLORIDE
     Indication: BRAIN NEOPLASM
     Route: 048
     Dates: start: 201709

REACTIONS (5)
  - Weight decreased [Unknown]
  - Insomnia [Unknown]
  - Intentional product use issue [Unknown]
  - Off label use [Unknown]
  - Lacrimation increased [Unknown]
